FAERS Safety Report 14353406 (Version 7)
Quarter: 2018Q3

REPORT INFORMATION
  Report Type: Other
  Country: PL (occurrence: PL)
  Receive Date: 20180105
  Receipt Date: 20180704
  Transmission Date: 20181010
  Serious: Yes (Life-Threatening, Hospitalization, Other)
  Sender: FDA-Public Use
  Company Number: PT-MACLEODS PHARMACEUTICALS US LTD-MAC2017007929

PATIENT

DRUGS (16)
  1. QUETIAPINE. [Interacting]
     Active Substance: QUETIAPINE
     Indication: PRODUCT USED FOR UNKNOWN INDICATION
     Dosage: 50 MG,QD,FREQUENCY:50 DAYS,50 MG ONCE A DAY (IN THE EVENING) OF QUETIAPINE,50 MG BEFORE BEDTIME, QHS
     Route: 065
  2. ATORVASTATIN 20 MG [Interacting]
     Active Substance: ATORVASTATIN
     Indication: PRODUCT USED FOR UNKNOWN INDICATION
     Dosage: 20 MG,QD,BEFORE AE THE PATIENT HAD BEEN RECEIVING 20 MILLIGRAM ONCE A DAY(IN EVENING),20 MG BEDTIME.
     Route: 065
  3. CARVEDILOL. [Interacting]
     Active Substance: CARVEDILOL
     Dosage: 6025 UNK, UNK
     Route: 065
  4. MILK THISTLE [Interacting]
     Active Substance: DIETARY SUPPLEMENT\HERBALS\MILK THISTLE
     Indication: PRODUCT USED FOR UNKNOWN INDICATION
     Dosage: 420 MG, QD
     Route: 065
  5. DONEPEZIL. [Suspect]
     Active Substance: DONEPEZIL
     Indication: PRODUCT USED FOR UNKNOWN INDICATION
     Dosage: 10 MG, QD, THE PATIENT HAS BEEN RECEIVING 10 MILLIGRAM ONCE A DAY (IN THE MORNING) OF DONEPEZIL
     Route: 048
  6. MILK THISTLE [Interacting]
     Active Substance: DIETARY SUPPLEMENT\HERBALS\MILK THISTLE
     Indication: ALANINE AMINOTRANSFERASE INCREASED
     Dosage: 140 MG, TID, FOR 4 DAYS
     Route: 065
  7. SERTRALINE [Interacting]
     Active Substance: SERTRALINE HYDROCHLORIDE
     Indication: PRODUCT USED FOR UNKNOWN INDICATION
     Dosage: 100 MG, QD, FREQUENCY 100 DAYS, THE PATIENT HAS BEEN RECEIVING 100 MILLIGRAM ONCE A DAY (IN THE MORN
     Route: 065
  8. TORASEMIDE [Interacting]
     Active Substance: TORSEMIDE
     Indication: PRODUCT USED FOR UNKNOWN INDICATION
     Dosage: 5 MG, QD, FREQUENCY: 5 DAYS, 5 MILLIGRAM ONCE A DAY (IN THE MORNING) OF TORASEMIDE
     Route: 065
  9. CARVEDILOL. [Interacting]
     Active Substance: CARVEDILOL
     Indication: PRODUCT USED FOR UNKNOWN INDICATION
     Dosage: 6.25 MG, QD, 6.25 MG IN THE MORNING
     Route: 065
  10. ZOFENOPRIL [Interacting]
     Active Substance: ZOFENOPRIL
     Dosage: UNK
     Route: 065
  11. CARVEDILOL. [Interacting]
     Active Substance: CARVEDILOL
     Dosage: 3.13 MG, QD, FREQUENCY: 6.25 DAYS, DOSE HAS BEEN REDUCED FROM 6.25 MG DAILY TO 3.125 MG ONCE A DAY
     Route: 065
  12. CARVEDILOL. [Interacting]
     Active Substance: CARVEDILOL
     Dosage: 6.35 MG, QD
     Route: 065
  13. MIANSERINE [Interacting]
     Active Substance: MIANSERIN HYDROCHLORIDE
     Indication: PRODUCT USED FOR UNKNOWN INDICATION
     Dosage: 30 MG,QD,FREQUENCY: 30 D,30 MILLIGRAM ONCE A DAY (IN THE EVENING)OF MIANSERIN,30 MG BEFORE BED TIME
     Route: 065
  14. MILK THISTLE [Interacting]
     Active Substance: DIETARY SUPPLEMENT\HERBALS\MILK THISTLE
     Dosage: 140 MG, QD, FREQUENCY: 420 DAYS
     Route: 048
  15. MILK THISTLE [Interacting]
     Active Substance: DIETARY SUPPLEMENT\HERBALS\MILK THISTLE
     Dosage: 3 DF, TID
     Route: 065
  16. ZOFENOPRIL [Interacting]
     Active Substance: ZOFENOPRIL
     Indication: PRODUCT USED FOR UNKNOWN INDICATION
     Dosage: 7.5 MG, QD, FREQUENCY: 7.5 DAYS, 7.5 MILLIGRAM ONCE A DAY (IN THE MORNING) OF ZOFENOPRIL
     Route: 065

REACTIONS (21)
  - Hypokalaemia [Recovered/Resolved]
  - Nausea [Recovered/Resolved]
  - Drug interaction [Recovered/Resolved]
  - Hyperhidrosis [Recovered/Resolved]
  - Bradycardia [Recovered/Resolved]
  - Liver function test increased [Recovered/Resolved]
  - Muscle contracture [Recovered/Resolved]
  - Muscle spasms [Recovered/Resolved]
  - Syncope [Recovered/Resolved]
  - Sedation complication [Recovered/Resolved]
  - Abdominal pain [Recovered/Resolved]
  - Loss of consciousness [Recovered/Resolved]
  - Hepatic pain [Recovered/Resolved]
  - Diarrhoea [Recovered/Resolved]
  - Somnolence [Recovered/Resolved]
  - Musculoskeletal chest pain [Recovered/Resolved]
  - Muscle contractions involuntary [Recovered/Resolved]
  - Alanine aminotransferase increased [Recovered/Resolved]
  - Hepatitis [Recovered/Resolved]
  - Liver disorder [Recovered/Resolved]
  - Dry mouth [Recovered/Resolved]
